FAERS Safety Report 8791426 (Version 1)
Quarter: 2012Q4

REPORT INFORMATION
  Report Type: Spontaneous
  Country: US (occurrence: None)
  Receive Date: 20120914
  Receipt Date: 20120914
  Transmission Date: 20130627
  Serious: Yes (Other)
  Sender: FDA-Public Use
  Company Number: None

PATIENT
  Age: 32 Year
  Sex: Female
  Weight: 62.6 kg

DRUGS (3)
  1. CYMBALTA [Suspect]
     Indication: BACK PAIN
     Dates: start: 20120501, end: 20120909
  2. CYMBALTA [Suspect]
     Indication: DEPRESSION
     Dates: start: 20120501, end: 20120909
  3. CYMBALTA [Suspect]
     Indication: ANXIETY
     Dates: start: 20120501, end: 20120909

REACTIONS (2)
  - Treatment noncompliance [None]
  - Drug withdrawal syndrome [None]
